FAERS Safety Report 5541795-3 (Version None)
Quarter: 2007Q4

REPORT INFORMATION
  Report Type: 
  Country: None (occurrence: None)
  Receive Date: 20071210
  Receipt Date: 20071205
  Transmission Date: 20080405
  Serious: Yes (Disabling)
  Sender: FDA-Public Use
  Company Number: D0051404A

PATIENT
  Age: 44 Year
  Sex: Male
  Weight: 106 kg

DRUGS (2)
  1. AVANDAMET [Suspect]
     Indication: DIABETES MELLITUS
     Dosage: 1002MG PER DAY
     Route: 065
     Dates: start: 20060410, end: 20061028
  2. ASPIRIN [Concomitant]
     Indication: THROMBOSIS PROPHYLAXIS
     Dosage: 100MG PER DAY
     Route: 065
     Dates: start: 20060617, end: 20061028

REACTIONS (13)
  - DYSAESTHESIA [None]
  - GAIT DISTURBANCE [None]
  - HUNGER [None]
  - HYPOAESTHESIA [None]
  - HYPOAESTHESIA FACIAL [None]
  - ILL-DEFINED DISORDER [None]
  - MUSCLE TIGHTNESS [None]
  - PARAESTHESIA [None]
  - PERIPHERAL COLDNESS [None]
  - POLYNEUROPATHY [None]
  - RESTLESSNESS [None]
  - TREMOR [None]
  - WEIGHT DECREASED [None]
